FAERS Safety Report 7369750-1 (Version None)
Quarter: 2011Q1

REPORT INFORMATION
  Report Type: 
  Country: None (occurrence: None)
  Receive Date: 20110317
  Receipt Date: 20110317
  Transmission Date: 20110831
  Serious: Yes (Disabling)
  Sender: FDA-Public Use
  Company Number: None

PATIENT
  Sex: Female
  Weight: 60.782 kg

DRUGS (4)
  1. IMMUNE GLOBULIN INTRAVENOUS (HUMAN) [Concomitant]
  2. METHYLPREDNISOLONE [Concomitant]
  3. CYTOXAN [Concomitant]
  4. HYDROXYCHLOROQUINE SULFATE [Suspect]
     Indication: SYSTEMIC LUPUS ERYTHEMATOSUS
     Dosage: 1 TABLET TWICE DAILY ORAL
     Route: 048
     Dates: end: 20101001

REACTIONS (3)
  - MACULOPATHY [None]
  - VISUAL IMPAIRMENT [None]
  - TOXICITY TO VARIOUS AGENTS [None]
